FAERS Safety Report 7811458-X (Version None)
Quarter: 2011Q4

REPORT INFORMATION
  Report Type: 
  Country: None (occurrence: None)
  Receive Date: 20111013
  Receipt Date: 20111011
  Transmission Date: 20120403
  Serious: Yes (Death)
  Sender: FDA-Public Use
  Company Number: CO-PFIZER INC-2011243830

PATIENT
  Age: 70 Year
  Sex: Male

DRUGS (1)
  1. CARDURA [Suspect]
     Dosage: UNK
     Route: 048
     Dates: start: 20050526

REACTIONS (1)
  - DEATH [None]
